FAERS Safety Report 22229369 (Version 3)
Quarter: 2025Q1

REPORT INFORMATION
  Report Type: Spontaneous
  Country: CN (occurrence: CN)
  Receive Date: 20230419
  Receipt Date: 20250131
  Transmission Date: 20250409
  Serious: Yes (Life-Threatening, Hospitalization, Other)
  Sender: PHARMACOSMOS A/S
  Company Number: CN-ADR-4404021007892202300214

PATIENT
  Age: 58 Year
  Sex: Female
  Weight: 65 kg

DRUGS (5)
  1. TRODELVY [Suspect]
     Active Substance: SACITUZUMAB GOVITECAN-HZIY
     Indication: Breast cancer
     Dates: start: 20230317, end: 20230317
  2. TRILACICLIB [Suspect]
     Active Substance: TRILACICLIB
     Indication: Breast cancer
     Dates: start: 20230317, end: 20230317
  3. TRILACICLIB [Suspect]
     Active Substance: TRILACICLIB
     Indication: Breast cancer
     Dates: start: 20230317, end: 20230317
  4. SODIUM CHLORIDE [Concomitant]
     Active Substance: SODIUM CHLORIDE
     Indication: Vehicle solution use
     Dates: start: 20230317, end: 20230317
  5. SODIUM CHLORIDE [Concomitant]
     Active Substance: SODIUM CHLORIDE
     Indication: Vehicle solution use
     Dates: start: 20230317, end: 20230317

REACTIONS (4)
  - Renal injury [Recovering/Resolving]
  - Off label use [Recovering/Resolving]
  - Myelosuppression [Recovering/Resolving]
  - Hypercalcaemia [Recovering/Resolving]

NARRATIVE: CASE EVENT DATE: 20230317
